FAERS Safety Report 15905818 (Version 2)
Quarter: 2020Q1

REPORT INFORMATION
  Report Type: Spontaneous
  Country: US (occurrence: US)
  Receive Date: 20190204
  Receipt Date: 20200211
  Transmission Date: 20200409
  Serious: No
  Sender: FDA-Public Use
  Company Number: US-ENDO PHARMACEUTICALS INC-2018-042892

PATIENT
  Age: 76 Year
  Sex: Female

DRUGS (3)
  1. METHYLPREDNISOLONE. [Suspect]
     Active Substance: METHYLPREDNISOLONE
     Indication: NEURALGIA
     Dosage: 6 DF, SINGLE
     Route: 048
     Dates: start: 20181017, end: 20181017
  2. BETAMOLOL [Concomitant]
     Indication: PRODUCT USED FOR UNKNOWN INDICATION
  3. METHYLPREDNISOLONE. [Suspect]
     Active Substance: METHYLPREDNISOLONE
     Dosage: 1 DF, SINGLE
     Route: 048
     Dates: start: 20181018, end: 20181018

REACTIONS (7)
  - Off label use [Unknown]
  - Palpitations [Unknown]
  - Adverse event [Unknown]
  - Heart rate increased [Unknown]
  - Dizziness [Unknown]
  - Hypertension [Unknown]
  - Diarrhoea [Recovered/Resolved]

NARRATIVE: CASE EVENT DATE: 20181017
